FAERS Safety Report 21044484 (Version 1)
Quarter: 2022Q3

REPORT INFORMATION
  Report Type: Spontaneous
  Country: US (occurrence: US)
  Receive Date: 20220705
  Receipt Date: 20220705
  Transmission Date: 20221027
  Serious: No
  Sender: FDA-Public Use
  Company Number: US-BAYER-2022A093392

PATIENT
  Age: 37 Year
  Sex: Female

DRUGS (1)
  1. CLARITIN-D 12 HOUR [Suspect]
     Active Substance: LORATADINE\PSEUDOEPHEDRINE SULFATE
     Dosage: 1 TO 2 TABLETS PER DAY
     Route: 048
     Dates: start: 20220628, end: 20220630

REACTIONS (2)
  - Drug ineffective [Not Recovered/Not Resolved]
  - Condition aggravated [Recovered/Resolved]

NARRATIVE: CASE EVENT DATE: 20220628
